FAERS Safety Report 5677194-3 (Version None)
Quarter: 2008Q1

REPORT INFORMATION
  Report Type: 
  Country: None (occurrence: None)
  Receive Date: 20080318
  Receipt Date: 20080307
  Transmission Date: 20080703
  Serious: Yes (Hospitalization)
  Sender: FDA-Public Use
  Company Number: 028-C5013-08011437

PATIENT
  Age: 75 Year
  Sex: Female

DRUGS (9)
  1. CC-5013 (LENALIDOMIDE) (CAPSULES) [Suspect]
     Indication: MULTIPLE MYELOMA
     Dosage: 25 MG, DAILY 21 OF 28 DAY CYCLE, ORAL
     Route: 048
     Dates: start: 20080118
  2. DEXAMETHASONE TAB [Suspect]
     Indication: MULTIPLE MYELOMA
     Dosage: 40 MG, WEEKLY X 4 WEEKS, ORAL
     Route: 048
     Dates: start: 20080118
  3. ASPIRIN [Concomitant]
  4. HEPARIN [Concomitant]
  5. APO 1SMN (ISOSORBIDE DINITRATE) [Concomitant]
  6. PLAVIX [Concomitant]
  7. ATENOLOL [Concomitant]
  8. ADALAT CC [Concomitant]
  9. RAMIPRIL (RAMILPRIL) [Concomitant]

REACTIONS (3)
  - CHEST PAIN [None]
  - PLEURAL EFFUSION [None]
  - PLEURITIC PAIN [None]
